APPROVED DRUG PRODUCT: LAMOTRIGINE
Active Ingredient: LAMOTRIGINE
Strength: 25MG
Dosage Form/Route: TABLET, FOR SUSPENSION;ORAL
Application: A200220 | Product #002
Applicant: JUBILANT GENERICS LTD
Approved: Feb 28, 2011 | RLD: No | RS: No | Type: DISCN